FAERS Safety Report 10542838 (Version 3)
Quarter: 2014Q4

REPORT INFORMATION
  Report Type: Spontaneous
  Country: US (occurrence: US)
  Receive Date: 20141027
  Receipt Date: 20141223
  Transmission Date: 20150529
  Serious: Yes (Other)
  Sender: FDA-Public Use
  Company Number: US-BEH-2014045722

PATIENT
  Age: 30 Year
  Sex: Female

DRUGS (1)
  1. RHOPHYLAC [Suspect]
     Active Substance: HUMAN RHO(D) IMMUNE GLOBULIN
     Indication: RHESUS INCOMPATIBILITY
     Route: 030
     Dates: start: 20130225, end: 20130225

REACTIONS (2)
  - Suspected transmission of an infectious agent via product [Unknown]
  - Hepatitis C antibody positive [Recovered/Resolved]

NARRATIVE: CASE EVENT DATE: 20141009
